FAERS Safety Report 5134083-0 (Version None)
Quarter: 2006Q4

REPORT INFORMATION
  Report Type: 
  Country: None (occurrence: None)
  Receive Date: 20061024
  Receipt Date: 20061019
  Transmission Date: 20070319
  Serious: Yes (Life-Threatening)
  Sender: FDA-Public Use
  Company Number: JP-BAYER-200611142BYL

PATIENT
  Age: 78 Year
  Sex: Male

DRUGS (6)
  1. GLUCOBAY [Suspect]
     Dosage: TOTAL DAILY DOSE: 300 MG  UNIT DOSE: 100 MG
     Route: 048
  2. DIOVAN [Concomitant]
     Route: 048
  3. BUFFERIN [Concomitant]
     Route: 048
  4. GASTER D [Concomitant]
     Route: 048
  5. MENIACE [Concomitant]
     Dosage: UNIT DOSE: 6 MG
     Route: 048
  6. YOUCOBAL [Concomitant]
     Route: 048

REACTIONS (3)
  - FEELING COLD [None]
  - HYPOGLYCAEMIA [None]
  - MALAISE [None]
